FAERS Safety Report 9096103 (Version 1)
Quarter: 2013Q1

REPORT INFORMATION
  Report Type: Spontaneous
  Country: GR (occurrence: GR)
  Receive Date: 20130207
  Receipt Date: 20130207
  Transmission Date: 20140127
  Serious: Yes (Other)
  Sender: FDA-Public Use
  Company Number: GR-TEVA-384784ISR

PATIENT
  Age: 62 Year
  Sex: Female

DRUGS (1)
  1. TAMOXIFEN [Suspect]
     Dates: start: 201208, end: 20121023

REACTIONS (2)
  - Polyp [Recovered/Resolved]
  - Haemorrhage [Recovered/Resolved]
